FAERS Safety Report 8252763-5 (Version None)
Quarter: 2012Q2

REPORT INFORMATION
  Report Type: 
  Country: None (occurrence: None)
  Receive Date: 20120402
  Receipt Date: 20110406
  Transmission Date: 20120825
  Serious: No
  Sender: FDA-Public Use
  Company Number: US-ABBOTT-11P-163-0804398-00

PATIENT
  Sex: Male
  Weight: 186.36 kg

DRUGS (11)
  1. LISINOPRIL [Concomitant]
     Indication: HYPERTENSION
     Dosage: DAILY DOSE: 40 MILLIGRAM(S)
     Route: 065
  2. HYDROCHLOROTHIAZIDE [Concomitant]
     Indication: HYPERTENSION
     Dosage: DAILY DOSE: 25 MILLIGRAM(S)
     Route: 065
  3. TESTOSTERONE [Suspect]
     Indication: BLOOD TESTOSTERONE DECREASED
     Dosage: DAILY DOSE:  UNKNOWN
     Route: 062
     Dates: start: 20100405
  4. TESTOSTERONE [Suspect]
     Indication: ERECTILE DYSFUNCTION
  5. RANITIDINE [Concomitant]
     Indication: GASTROOESOPHAGEAL REFLUX DISEASE
     Dosage: DAILY DOSE: 150 MILLIGRAM(S)
     Route: 065
  6. SIMVASTATIN [Concomitant]
     Indication: BLOOD CHOLESTEROL INCREASED
     Dosage: DAILY DOSE: 40 MILLIGRAM(S)
     Route: 065
  7. AMLODIPINE [Concomitant]
     Indication: HYPERTENSION
     Dosage: DAILY DOSE: 10 MILLIGRAM(S)
     Route: 065
  8. LEVOTHYROXINE [Concomitant]
     Indication: HYPOTHYROIDISM
     Dosage: DAILY DOSE: 125 MICROGRAM(S)
     Route: 065
  9. INDOMETACIN [Concomitant]
     Indication: GOUT
     Dosage: DAILY DOSE:  UNKNOWN, AS USED: 50 MILLIGRAM(S), FREQUENCY: AS NEEDED
     Route: 065
  10. TAMSULOSIN HYDROCHLORIDE [Concomitant]
     Indication: PROSTATOMEGALY
     Dosage: DAILY DOSE: .4 MILLIGRAM(S)
     Route: 065
  11. TAMSULOSIN HYDROCHLORIDE [Concomitant]
     Indication: URGE INCONTINENCE

REACTIONS (4)
  - INCORRECT DOSE ADMINISTERED [None]
  - FLATULENCE [None]
  - HEART RATE INCREASED [None]
  - DIZZINESS [None]
